FAERS Safety Report 4489284-1 (Version None)
Quarter: 2004Q4

REPORT INFORMATION
  Report Type: 
  Country: None (occurrence: None)
  Receive Date: 20041029
  Receipt Date: 20030605
  Transmission Date: 20050328
  Serious: Yes (Hospitalization, Disabling, Other)
  Sender: FDA-Public Use
  Company Number: US-MERCK-0306USA00900

PATIENT
  Age: 59 Year
  Sex: Female
  Weight: 126 kg

DRUGS (11)
  1. VIOXX [Suspect]
     Indication: PAIN IN EXTREMITY
     Route: 048
     Dates: start: 20000913, end: 20001130
  2. VIOXX [Suspect]
     Route: 048
     Dates: start: 20010101
  3. VIOXX [Suspect]
     Indication: PLANTAR FASCIITIS
     Route: 048
     Dates: start: 20000913, end: 20001130
  4. VIOXX [Suspect]
     Route: 048
     Dates: start: 20010101
  5. SYNTHROID [Concomitant]
     Route: 065
  6. SYNTHROID [Concomitant]
     Route: 065
  7. AMBIEN [Concomitant]
     Route: 065
  8. CELEXA [Concomitant]
     Route: 065
  9. MAXZIDE [Concomitant]
     Route: 065
  10. HYDROCHLOROTHIAZIDE [Concomitant]
     Route: 065
  11. PREVACID [Concomitant]
     Indication: ULCER
     Route: 065

REACTIONS (24)
  - ABDOMINAL DISTENSION [None]
  - ABSCESS [None]
  - ADVERSE EVENT [None]
  - AXILLARY MASS [None]
  - BLOOD GLUCOSE INCREASED [None]
  - BLOOD PRESSURE INCREASED [None]
  - BREAST MASS [None]
  - CATARACT [None]
  - COLON ADENOMA [None]
  - COSTOVERTEBRAL ANGLE TENDERNESS [None]
  - DIVERTICULUM [None]
  - HAEMATOCHEZIA [None]
  - HAEMORRHOIDS [None]
  - ILEUS [None]
  - INCISIONAL HERNIA [None]
  - MUCOSAL MEMBRANE HYPERPLASIA [None]
  - MUSCLE STRAIN [None]
  - PAIN IN EXTREMITY [None]
  - POLYP [None]
  - RENAL CYST [None]
  - RHINITIS ALLERGIC [None]
  - UPPER RESPIRATORY TRACT INFECTION [None]
  - URINARY TRACT INFECTION [None]
  - VITREOUS FLOATERS [None]
